FAERS Safety Report 14529583 (Version 1)
Quarter: 2018Q1

REPORT INFORMATION
  Report Type: Spontaneous
  Country: US (occurrence: US)
  Receive Date: 20180214
  Receipt Date: 20180214
  Transmission Date: 20180509
  Serious: Yes (Hospitalization, Other)
  Sender: FDA-Public Use
  Company Number: US-JNJFOC-20180214047

PATIENT
  Age: 55 Year
  Sex: Male

DRUGS (2)
  1. INVOKANA [Suspect]
     Active Substance: CANAGLIFLOZIN
     Indication: TYPE 2 DIABETES MELLITUS
     Route: 048
     Dates: start: 2013
  2. INVOKANA [Suspect]
     Active Substance: CANAGLIFLOZIN
     Indication: TYPE 2 DIABETES MELLITUS
     Route: 048
     Dates: start: 20141021

REACTIONS (7)
  - Skin lesion [Unknown]
  - Lesion excision [Unknown]
  - Metatarsal excision [Unknown]
  - Ostectomy [Unknown]
  - Foot deformity [Unknown]
  - Osteomyelitis [Unknown]
  - Blister infected [Unknown]

NARRATIVE: CASE EVENT DATE: 20131111
